FAERS Safety Report 16953841 (Version 1)
Quarter: 2019Q4

REPORT INFORMATION
  Report Type: Spontaneous
  Country: US (occurrence: US)
  Receive Date: 20191023
  Receipt Date: 20191023
  Transmission Date: 20200122
  Serious: Yes (Hospitalization)
  Sender: FDA-Public Use
  Company Number: US-LEADING PHARMA, LLC-2075982

PATIENT
  Age: 7 Month
  Sex: Female

DRUGS (2)
  1. BTX-A (ONABOTULINUM TOXIN A) [Concomitant]
  2. GLYCOPYRROLATE. [Suspect]
     Active Substance: GLYCOPYRROLATE

REACTIONS (2)
  - Salivary hypersecretion [None]
  - Respiratory distress [None]
